FAERS Safety Report 5686943-X (Version None)
Quarter: 2008Q1

REPORT INFORMATION
  Report Type: 
  Country: None (occurrence: None)
  Receive Date: 20080328
  Receipt Date: 20070606
  Transmission Date: 20080703
  Serious: No
  Sender: FDA-Public Use
  Company Number: US-BAYER-US-2007-021331

PATIENT
  Age: 24 Year
  Sex: Female
  Weight: 77 kg

DRUGS (2)
  1. MIRENA [Suspect]
     Indication: CONTRACEPTION
     Route: 015
     Dates: start: 20070418
  2. MEDICATION FOR DIZZINESS (NOS) [Concomitant]

REACTIONS (4)
  - AMENORRHOEA [None]
  - DIZZINESS [None]
  - METRORRHAGIA [None]
  - NAUSEA [None]
